FAERS Safety Report 24394185 (Version 1)
Quarter: 2024Q4

REPORT INFORMATION
  Report Type: Spontaneous
  Country: FR (occurrence: FR)
  Receive Date: 20241004
  Receipt Date: 20241004
  Transmission Date: 20250114
  Serious: Yes (Hospitalization)
  Sender: JOHNSON AND JOHNSON
  Company Number: None

PATIENT
  Age: 84 Year
  Sex: Male
  Weight: 63 kg

DRUGS (7)
  1. XARELTO [Interacting]
     Active Substance: RIVAROXABAN
     Indication: Anticoagulant therapy
     Route: 048
  2. BRUKINSA [Interacting]
     Active Substance: ZANUBRUTINIB
     Indication: Chronic lymphocytic leukaemia
     Route: 048
     Dates: start: 20240722
  3. QUETIAPINE [Concomitant]
     Active Substance: QUETIAPINE
  4. FUROSEMIDE [Concomitant]
     Active Substance: FUROSEMIDE
  5. CHOLECALCIFEROL [Concomitant]
     Active Substance: CHOLECALCIFEROL
  6. PIMAVANSERIN [Concomitant]
     Active Substance: PIMAVANSERIN
  7. RIVASTIGMINE [Concomitant]
     Active Substance: RIVASTIGMINE

REACTIONS (2)
  - Purpura [Recovered/Resolved]
  - Drug interaction [Recovered/Resolved]

NARRATIVE: CASE EVENT DATE: 20240805
